FAERS Safety Report 13842322 (Version 1)
Quarter: 2017Q3

REPORT INFORMATION
  Report Type: Report from Study
  Country: None (occurrence: US)
  Receive Date: 20170807
  Receipt Date: 20170807
  Transmission Date: 20171127
  Serious: Yes (Hospitalization, Other)
  Sender: FDA-Public Use
  Company Number: US-ABBVIE-17K-163-1970373-00

PATIENT
  Age: 70 Year
  Sex: Male
  Weight: 88.53 kg

DRUGS (1)
  1. HUMIRA [Suspect]
     Active Substance: ADALIMUMAB
     Indication: PSORIASIS
     Route: 058
     Dates: start: 2006

REACTIONS (11)
  - Prostate cancer [Unknown]
  - Lentigo [Unknown]
  - Pigmentation disorder [Unknown]
  - Nephrolithiasis [Unknown]
  - Cartilage atrophy [Recovered/Resolved]
  - Psoriasis [Unknown]
  - Skin cancer [Unknown]
  - Anaemia [Unknown]
  - Glucose tolerance impaired [Unknown]
  - Hypercholesterolaemia [Unknown]
  - Hyperkeratosis [Unknown]

NARRATIVE: CASE EVENT DATE: 201407
